FAERS Safety Report 9699811 (Version 2)
Quarter: 2014Q1

REPORT INFORMATION
  Report Type: Spontaneous
  Country: US (occurrence: US)
  Receive Date: 20131120
  Receipt Date: 20140116
  Transmission Date: 20141002
  Serious: Yes (Other)
  Sender: FDA-Public Use
  Company Number: US-009507513-1311USA006991

PATIENT
  Age: 51 Year
  Sex: Female

DRUGS (9)
  1. VYTORIN [Suspect]
     Indication: BLOOD CHOLESTEROL INCREASED
     Dosage: 10/20 MG, ONE A DAY
     Route: 048
     Dates: start: 20130628, end: 20131113
  2. METFORMIN [Concomitant]
  3. AMITRIPTYLINE HYDROCHLORIDE [Concomitant]
     Route: 048
  4. NEXIUM [Concomitant]
     Route: 048
  5. LEVOTHYROXINE SODIUM [Concomitant]
     Route: 048
  6. STATIN (UNSPECIFIED) [Concomitant]
  7. MELATONIN [Concomitant]
  8. LYRICA [Concomitant]
  9. AZITHROMYCIN [Concomitant]

REACTIONS (9)
  - Foot operation [Unknown]
  - Musculoskeletal stiffness [Not Recovered/Not Resolved]
  - Feeling abnormal [Not Recovered/Not Resolved]
  - Chest pain [Not Recovered/Not Resolved]
  - Asthenia [Not Recovered/Not Resolved]
  - Pain in extremity [Not Recovered/Not Resolved]
  - Pain in extremity [Not Recovered/Not Resolved]
  - Back pain [Not Recovered/Not Resolved]
  - Abdominal pain [Not Recovered/Not Resolved]
